FAERS Safety Report 6246817-2 (Version None)
Quarter: 2009Q2

REPORT INFORMATION
  Report Type: 
  Country: None (occurrence: None)
  Receive Date: 20090626
  Receipt Date: 20090616
  Transmission Date: 20091009
  Serious: Yes (Other)
  Sender: FDA-Public Use
  Company Number: NL-PFIZER INC-2009228137

PATIENT

DRUGS (1)
  1. SUTENT [Suspect]

REACTIONS (1)
  - JAUNDICE [None]
